FAERS Safety Report 6143188-7 (Version None)
Quarter: 2009Q2

REPORT INFORMATION
  Report Type: 
  Country: None (occurrence: None)
  Receive Date: 20090403
  Receipt Date: 20030425
  Transmission Date: 20091009
  Serious: Yes (Death)
  Sender: FDA-Public Use
  Company Number: MX-ROCHE-337134

PATIENT
  Sex: Female
  Weight: 64 kg

DRUGS (17)
  1. DACLIZUMAB [Suspect]
     Route: 042
     Dates: start: 20030411, end: 20030411
  2. MYCOPHENOLATE MOFETIL [Suspect]
     Route: 048
     Dates: start: 20030411
  3. TACROLIMUS [Suspect]
     Route: 048
     Dates: start: 20030411
  4. PREDNISONE [Suspect]
     Route: 048
     Dates: start: 20030412
  5. PREDNISONE [Suspect]
     Route: 048
     Dates: start: 20030413
  6. PREDNISONE [Suspect]
     Route: 048
     Dates: start: 20030414
  7. PREDNISONE [Suspect]
     Route: 048
     Dates: start: 20030415
  8. PREDNISONE [Suspect]
     Route: 048
     Dates: start: 20030416
  9. PREDNISONE [Suspect]
     Route: 048
     Dates: start: 20030417
  10. CALCIUM CARBONATE [Concomitant]
     Route: 048
     Dates: start: 20030417
  11. NIFEDIPINE [Concomitant]
     Route: 048
     Dates: start: 20030411
  12. PRAZSOIN HCL [Concomitant]
     Route: 048
     Dates: start: 20030411
  13. FUROSEMIDE [Concomitant]
     Route: 042
     Dates: start: 20030411
  14. FUROSEMIDE [Concomitant]
     Route: 042
     Dates: start: 20030412
  15. ISOSORBIDE [Concomitant]
     Route: 048
     Dates: start: 20030411
  16. METHYLPREDNISOLONE 4MG TAB [Concomitant]
     Route: 042
     Dates: start: 20030411
  17. RANITIDINE [Concomitant]
     Route: 048
     Dates: start: 20030412

REACTIONS (1)
  - PULMONARY EMBOLISM [None]
